FAERS Safety Report 9025484 (Version 2)
Quarter: 2013Q1

REPORT INFORMATION
  Report Type: Spontaneous
  Country: US (occurrence: US)
  Receive Date: 20130122
  Receipt Date: 20130215
  Transmission Date: 20140127
  Serious: No
  Sender: FDA-Public Use
  Company Number: US-ASTRAZENECA-2011SE19697

PATIENT
  Age: 51 Year
  Sex: Female

DRUGS (6)
  1. SEROQUEL [Suspect]
     Route: 048
  2. SEROQUEL [Suspect]
     Dosage: 100MG ONE TO TWO TABLETS AT BEDTIME
     Route: 048
  3. SEROQUEL [Suspect]
     Route: 048
  4. SEROQUEL [Suspect]
     Route: 048
  5. SEROQUEL [Suspect]
     Route: 048
  6. SEROQUEL [Suspect]
     Route: 048

REACTIONS (7)
  - Adverse drug reaction [Unknown]
  - Insomnia [Unknown]
  - Malaise [Unknown]
  - Abnormal dreams [Unknown]
  - Nightmare [Unknown]
  - Drug ineffective [Unknown]
  - Drug dose omission [Unknown]
